FAERS Safety Report 5329984-4 (Version None)
Quarter: 2007Q2

REPORT INFORMATION
  Report Type: 
  Country: None (occurrence: None)
  Receive Date: 20070521
  Receipt Date: 20070517
  Transmission Date: 20071010
  Serious: Yes (Other)
  Sender: FDA-Public Use
  Company Number: A0651752A

PATIENT
  Sex: Female

DRUGS (2)
  1. LAMICTAL [Suspect]
     Indication: EPILEPSY
     Route: 048
     Dates: end: 20070101
  2. SEIZURE MEDICATION [Concomitant]

REACTIONS (2)
  - CONVULSION [None]
  - PHOTOSENSITIVITY REACTION [None]
